FAERS Safety Report 9454568 (Version 1)
Quarter: 2013Q3

REPORT INFORMATION
  Report Type: Spontaneous
  Country: FR (occurrence: FR)
  Receive Date: 20130812
  Receipt Date: 20130812
  Transmission Date: 20140515
  Serious: Yes (Hospitalization)
  Sender: FDA-Public Use
  Company Number: FR-UCBSA-094023

PATIENT
  Age: 66 Year
  Sex: Female

DRUGS (6)
  1. NEUPRO [Suspect]
     Indication: PARKINSON^S DISEASE
     Route: 062
     Dates: start: 201208, end: 20130423
  2. MADOPAR [Concomitant]
  3. TAHOR [Concomitant]
  4. NEBIVOLOL [Concomitant]
  5. AZILECT [Concomitant]
     Dosage: UNKNOWN DOSE
  6. STALEVO [Concomitant]

REACTIONS (3)
  - Fall [Unknown]
  - Skin reaction [Recovered/Resolved]
  - Application site pruritus [Recovered/Resolved]
